FAERS Safety Report 5973855-7 (Version None)
Quarter: 2008Q4

REPORT INFORMATION
  Report Type: 
  Country: None (occurrence: None)
  Receive Date: 20081125
  Receipt Date: 20081114
  Transmission Date: 20090506
  Serious: Yes (Life-Threatening, Hospitalization, Disabling, Other)
  Sender: FDA-Public Use
  Company Number: CLOF-1000290

PATIENT
  Age: 10 Year
  Sex: Male
  Weight: 44 kg

DRUGS (10)
  1. CLOLAR [Suspect]
     Indication: ACUTE MYELOID LEUKAEMIA
     Dosage: 73 MG, ONCE, INTRAVENOUS; 36.5 MG, QD, INTRAVENOUS
     Route: 042
     Dates: start: 20080909, end: 20080909
  2. CLOLAR [Suspect]
     Indication: ACUTE MYELOID LEUKAEMIA
     Dosage: 73 MG, ONCE, INTRAVENOUS; 36.5 MG, QD, INTRAVENOUS
     Route: 042
     Dates: start: 20080917, end: 20080918
  3. CYCTARABINE (CYCTARABINE) [Suspect]
     Indication: ACUTE MYELOID LEUKAEMIA
     Dosage: 1 G/M2, QD, INTRAVENOUS; 1 G/M2, QDX3, INTRAVENOUS
     Route: 042
     Dates: start: 20080909, end: 20080909
  4. CYCTARABINE (CYCTARABINE) [Suspect]
     Indication: ACUTE MYELOID LEUKAEMIA
     Dosage: 1 G/M2, QD, INTRAVENOUS; 1 G/M2, QDX3, INTRAVENOUS
     Route: 042
     Dates: start: 20080918, end: 20080920
  5. METHYLPREDNISOLONE (METHYLPRDNISOLONE) [Concomitant]
  6. ALLOPURINOL [Concomitant]
  7. CEFEPIME [Concomitant]
  8. PERIDEX (CHLORHEXIDINE GLUCONATE) [Concomitant]
  9. MORPHINE [Concomitant]
  10. ACETAMINOPHEN [Concomitant]

REACTIONS (36)
  - ALANINE AMINOTRANSFERASE INCREASED [None]
  - ASPARTATE AMINOTRANSFERASE INCREASED [None]
  - BILIRUBIN CONJUGATED INCREASED [None]
  - BLOOD ALKALINE PHOSPHATASE INCREASED [None]
  - BLOOD BILIRUBIN INCREASED [None]
  - CAECITIS [None]
  - CARDIAC FAILURE [None]
  - COAGULOPATHY [None]
  - CONJUNCTIVAL HAEMORRHAGE [None]
  - CONTUSION [None]
  - CONVULSION [None]
  - CYSTITIS HAEMORRHAGIC [None]
  - DIALYSIS [None]
  - ENCEPHALOPATHY [None]
  - EYE MOVEMENT DISORDER [None]
  - GAZE PALSY [None]
  - HAEMODIALYSIS [None]
  - HAEMORRHAGE [None]
  - HAEMORRHAGE INTRACRANIAL [None]
  - HEMIPARESIS [None]
  - HYPOTENSION [None]
  - INTERNATIONAL NORMALISED RATIO INCREASED [None]
  - MULTI-ORGAN FAILURE [None]
  - NERVOUS SYSTEM DISORDER [None]
  - OPTIC NERVE SHEATH HAEMORRHAGE [None]
  - PAIN [None]
  - PRURITUS [None]
  - PYREXIA [None]
  - RENAL FAILURE ACUTE [None]
  - RESPIRATORY DISTRESS [None]
  - RESPIRATORY FAILURE [None]
  - RETINAL HAEMORRHAGE [None]
  - SKIN LESION [None]
  - SYSTEMIC INFLAMMATORY RESPONSE SYNDROME [None]
  - TRANSAMINASES INCREASED [None]
  - TUMOUR LYSIS SYNDROME [None]
